FAERS Safety Report 7808496-X (Version None)
Quarter: 2011Q4

REPORT INFORMATION
  Report Type: 
  Country: None (occurrence: None)
  Receive Date: 20111006
  Receipt Date: 20110926
  Transmission Date: 20120403
  Serious: Yes (Other)
  Sender: FDA-Public Use
  Company Number: 1000024217

PATIENT
  Age: 51 Year
  Sex: Male

DRUGS (8)
  1. DILTIAZEM [Suspect]
  2. NITROGLYCERIN [Suspect]
  3. GELAFUSINE [Concomitant]
  4. CATAPRESSAN (CLONIDINE) (CLONIDINE) [Concomitant]
  5. ZOLPIDEM (ZOLPIDEM) (ZOLPIDEM) [Concomitant]
  6. DORMICUM (MIDAZOLAM) (MIDAZOLAM) [Concomitant]
  7. DOLANTINE (PETHIDINE HYDROCHLORIDE) (PETHIDINE HYDROCHLORIDE) [Concomitant]
  8. DICLOFENAC SODIUM [Concomitant]

REACTIONS (1)
  - POSTERIOR REVERSIBLE ENCEPHALOPATHY SYNDROME [None]
